FAERS Safety Report 12488595 (Version 1)
Quarter: 2016Q2

REPORT INFORMATION
  Report Type: Spontaneous
  Country: US (occurrence: US)
  Receive Date: 20160622
  Receipt Date: 20160622
  Transmission Date: 20160815
  Serious: Yes (Hospitalization)
  Sender: FDA-Public Use
  Company Number: US-MALLINCKRODT-T201602560

PATIENT
  Age: 56 Year
  Sex: Male
  Weight: 91 kg

DRUGS (1)
  1. H.P. ACTHAR [Suspect]
     Active Substance: CORTICOTROPIN
     Indication: NEPHROTIC SYNDROME
     Dosage: 40 UNITS TWICE WEEKLY
     Route: 058
     Dates: start: 20160606, end: 20160608

REACTIONS (2)
  - Haematemesis [Recovered/Resolved]
  - Haematochezia [Recovered/Resolved]

NARRATIVE: CASE EVENT DATE: 20160608
